FAERS Safety Report 20278907 (Version 1)
Quarter: 2022Q1

REPORT INFORMATION
  Report Type: Spontaneous
  Country: FR (occurrence: FR)
  Receive Date: 20220103
  Receipt Date: 20220103
  Transmission Date: 20220423
  Serious: Yes (Other)
  Sender: FDA-Public Use
  Company Number: FR-AFSSAPS-ST20214622

PATIENT
  Age: 35 Year
  Sex: Female
  Weight: 64 kg

DRUGS (1)
  1. TRAMADOL [Suspect]
     Active Substance: TRAMADOL
     Indication: Back pain
     Dosage: 100 MILLIGRAM (SINGLE TAKE)
     Route: 048
     Dates: start: 20211119, end: 20211119

REACTIONS (5)
  - Palpitations [Recovering/Resolving]
  - Vertigo [Recovering/Resolving]
  - Attention deficit hyperactivity disorder [Recovering/Resolving]
  - Malaise [Recovering/Resolving]
  - Hypoaesthesia [Recovering/Resolving]

NARRATIVE: CASE EVENT DATE: 20211119
